FAERS Safety Report 7522708-1 (Version None)
Quarter: 2011Q2

REPORT INFORMATION
  Report Type: 
  Country: None (occurrence: None)
  Receive Date: 20110603
  Receipt Date: 20110531
  Transmission Date: 20111010
  Serious: Yes (Other)
  Sender: FDA-Public Use
  Company Number: US-PFIZER INC-2011118106

PATIENT
  Sex: Female
  Weight: 55.329 kg

DRUGS (1)
  1. ADVIL PM [Suspect]
     Indication: BACK PAIN
     Dosage: 200 MG, DAILY
     Route: 048
     Dates: end: 20110525

REACTIONS (1)
  - EPISTAXIS [None]
